FAERS Safety Report 23915387 (Version 2)
Quarter: 2024Q3

REPORT INFORMATION
  Report Type: Spontaneous
  Country: US (occurrence: US)
  Receive Date: 20240529
  Receipt Date: 20240716
  Transmission Date: 20241017
  Serious: Yes (Other)
  Sender: ABBVIE
  Company Number: US-ABBVIE-5770300

PATIENT
  Sex: Female

DRUGS (4)
  1. SYNTHROID [Suspect]
     Active Substance: LEVOTHYROXINE SODIUM
     Indication: Product used for unknown indication
     Route: 048
  2. XELJANZ XR [Suspect]
     Active Substance: TOFACITINIB CITRATE
     Indication: Rheumatoid arthritis
     Route: 048
     Dates: start: 20231024
  3. XELJANZ XR [Suspect]
     Active Substance: TOFACITINIB CITRATE
     Indication: Rheumatoid arthritis
     Route: 048
     Dates: start: 20231101
  4. METHOTREXATE [Concomitant]
     Active Substance: METHOTREXATE
     Indication: Rheumatoid arthritis
     Route: 048
     Dates: start: 20231122

REACTIONS (13)
  - Bipolar I disorder [Unknown]
  - Fall [Unknown]
  - Drug ineffective [Not Recovered/Not Resolved]
  - Pain [Not Recovered/Not Resolved]
  - Infection [Not Recovered/Not Resolved]
  - Respiratory syncytial virus infection [Unknown]
  - Depressed mood [Unknown]
  - Fatigue [Unknown]
  - Urinary tract infection [Unknown]
  - Ligament sprain [Unknown]
  - Thyroid hormones increased [Unknown]
  - Weight increased [Unknown]
  - Fungal infection [Unknown]

NARRATIVE: CASE EVENT DATE: 20240520
